FAERS Safety Report 6374169-6 (Version None)
Quarter: 2009Q3

REPORT INFORMATION
  Report Type: 
  Country: None (occurrence: None)
  Receive Date: 20090924
  Receipt Date: 20090618
  Transmission Date: 20100115
  Serious: Yes (Hospitalization)
  Sender: FDA-Public Use
  Company Number: US-ASTRAZENECA-2009UW15877

PATIENT
  Age: 36 Year
  Sex: Female
  Weight: 147.4 kg

DRUGS (5)
  1. SEROQUEL [Suspect]
     Indication: DEPRESSION
     Dosage: 200 MG TO 600 MG
     Route: 048
     Dates: start: 20030101
  2. SEROQUEL [Suspect]
     Indication: SCHIZOPHRENIA
     Dosage: 200 MG TO 600 MG
     Route: 048
     Dates: start: 20030101
  3. ABILIFY [Concomitant]
     Dates: start: 20060101
  4. GEODON [Concomitant]
     Dates: start: 20070101
  5. RISPERDAL [Concomitant]
     Dates: start: 20070101

REACTIONS (4)
  - BLOOD CHOLESTEROL INCREASED [None]
  - BLOOD TRIGLYCERIDES INCREASED [None]
  - SUICIDE ATTEMPT [None]
  - TYPE 2 DIABETES MELLITUS [None]
